FAERS Safety Report 14280299 (Version 1)
Quarter: 2017Q4

REPORT INFORMATION
  Report Type: Spontaneous
  Country: US (occurrence: US)
  Receive Date: 20171212
  Receipt Date: 20171212
  Transmission Date: 20180321
  Serious: Yes (Disabling)
  Sender: FDA-Public Use
  Company Number: None

PATIENT
  Age: 33 Year
  Sex: Female
  Weight: 63 kg

DRUGS (1)
  1. IC SPIRONOLACTONE 50 MG [Suspect]
     Active Substance: SPIRONOLACTONE
     Indication: ACNE
     Dosage: ?          QUANTITY:60 TABLET(S);?
     Route: 048
     Dates: start: 20160406, end: 20171118

REACTIONS (6)
  - Off label use [None]
  - Palpitations [None]
  - Nausea [None]
  - Loss of personal independence in daily activities [None]
  - Sleep disorder due to general medical condition, insomnia type [None]
  - Paraesthesia [None]

NARRATIVE: CASE EVENT DATE: 20171023
